FAERS Safety Report 15673277 (Version 1)
Quarter: 2018Q4

REPORT INFORMATION
  Report Type: Spontaneous
  Country: IT (occurrence: IT)
  Receive Date: 20181129
  Receipt Date: 20181129
  Transmission Date: 20190205
  Serious: Yes (Hospitalization)
  Sender: FDA-Public Use
  Company Number: PHHY2018IT168466

PATIENT
  Age: 91 Year
  Sex: Female

DRUGS (9)
  1. ZAROXOLYN [Suspect]
     Active Substance: METOLAZONE
     Indication: OEDEMA
     Dosage: 1.5 DF, QD
     Route: 048
     Dates: start: 20181004
  2. PEPTAZOL [Concomitant]
     Active Substance: PANTOPRAZOLE SODIUM
     Indication: PRODUCT USED FOR UNKNOWN INDICATION
     Dosage: UNK
     Route: 065
  3. AZOPT [Concomitant]
     Active Substance: BRINZOLAMIDE
     Indication: PRODUCT USED FOR UNKNOWN INDICATION
     Dosage: UNK
     Route: 065
  4. ZAROXOLYN [Suspect]
     Active Substance: METOLAZONE
     Dosage: 1.5 DF, QD
     Route: 048
     Dates: start: 20181007
  5. NITROCOR [Concomitant]
     Active Substance: NITROGLYCERIN
     Indication: PRODUCT USED FOR UNKNOWN INDICATION
     Dosage: UNK
     Route: 065
  6. EPREX [Concomitant]
     Active Substance: ERYTHROPOIETIN
     Indication: PRODUCT USED FOR UNKNOWN INDICATION
     Dosage: UNK
     Route: 065
  7. CARDICOR [Concomitant]
     Active Substance: BISOPROLOL
     Indication: PRODUCT USED FOR UNKNOWN INDICATION
     Dosage: UNK
     Route: 065
  8. FUROSEMIDE. [Suspect]
     Active Substance: FUROSEMIDE
     Indication: HYPERTENSION
     Dosage: 4 DF, QD
     Route: 048
     Dates: start: 20180101
  9. FUROSEMIDE. [Suspect]
     Active Substance: FUROSEMIDE
     Dosage: 4 DF, QD
     Route: 048
     Dates: start: 20181007

REACTIONS (2)
  - Hypokalaemia [Unknown]
  - Presyncope [Unknown]

NARRATIVE: CASE EVENT DATE: 20181007
